FAERS Safety Report 9423402 (Version 1)
Quarter: 2013Q3

REPORT INFORMATION
  Report Type: Report from Study
  Country: US (occurrence: US)
  Receive Date: 20130726
  Receipt Date: 20130726
  Transmission Date: 20140515
  Serious: Yes (Hospitalization)
  Sender: FDA-Public Use
  Company Number: US-GLAXOSMITHKLINE-A0925750A

PATIENT
  Age: 68 Year
  Sex: Female
  Weight: 75.36 kg

DRUGS (20)
  1. BELIMUMAB [Suspect]
     Indication: SYSTEMIC LUPUS ERYTHEMATOSUS
     Dosage: 10MGK EVERY 28 DAYS
     Dates: start: 20090818, end: 20091013
  2. INSULIN [Concomitant]
     Indication: DIABETES MELLITUS
     Route: 058
     Dates: start: 20051105
  3. ESOMEPRAZOLE [Concomitant]
     Indication: GASTROOESOPHAGEAL REFLUX DISEASE
     Dosage: 40MG PER DAY
     Route: 048
     Dates: start: 1986
  4. PREDNISONE [Concomitant]
     Indication: SYSTEMIC LUPUS ERYTHEMATOSUS
     Dosage: 10MG PER DAY
     Route: 048
     Dates: start: 1980
  5. LOSARTAN [Concomitant]
     Indication: HYPERTENSION
     Dosage: 100MG PER DAY
     Route: 048
     Dates: start: 2000
  6. ALLOPURINOL [Concomitant]
     Indication: GOUT
     Dosage: 300MG PER DAY
     Route: 048
     Dates: start: 200703
  7. CONJUGATED ESTROGEN [Concomitant]
     Indication: HORMONE REPLACEMENT THERAPY
     Dosage: .625MG PER DAY
     Route: 048
     Dates: start: 1986
  8. RISEDRONATE [Concomitant]
     Indication: OSTEOPOROSIS
     Route: 048
     Dates: start: 2006
  9. DIAZEPAM [Concomitant]
     Indication: SLEEP DISORDER
     Route: 048
     Dates: start: 2007
  10. CELECOXIB [Concomitant]
     Indication: INFLAMMATION
     Dosage: 200MG PER DAY
     Route: 048
     Dates: start: 2005
  11. GABAPENTIN [Concomitant]
     Indication: PAIN IN EXTREMITY
     Dosage: 300MG PER DAY
     Route: 048
     Dates: start: 2007
  12. ESZOPICLONE [Concomitant]
     Indication: SLEEP DISORDER
     Route: 048
     Dates: start: 200710
  13. CENTRUM SILVER [Concomitant]
     Indication: MEDICAL DIET
     Route: 048
     Dates: start: 1997
  14. VITAMIN C [Concomitant]
     Indication: MEDICAL DIET
     Dosage: 500MG PER DAY
     Route: 048
     Dates: start: 1950
  15. ACETAMINOPHEN + PROPOXYPHENE NAPSYLATE [Concomitant]
     Indication: ARTHRALGIA
     Route: 048
     Dates: start: 20080311
  16. SIMVASTATIN [Concomitant]
     Indication: BLOOD CHOLESTEROL INCREASED
     Dosage: 20MG PER DAY
     Route: 048
     Dates: start: 20080613
  17. COLLAGENASE SANTYL [Concomitant]
     Indication: WOUND
     Route: 061
     Dates: start: 20081222
  18. TORSEMIDE [Concomitant]
     Indication: DIURETIC THERAPY
     Dosage: 20MG PER DAY
     Route: 048
     Dates: start: 20090221
  19. TORSEMIDE [Concomitant]
     Indication: HYPERTENSION
  20. CALCIUM [Concomitant]
     Indication: MEDICAL DIET
     Dosage: 600MG PER DAY
     Route: 048
     Dates: start: 1997

REACTIONS (1)
  - Cellulitis [Recovered/Resolved]
